FAERS Safety Report 7626773 (Version 5)
Quarter: 2016Q3

REPORT INFORMATION
  Report Type: Spontaneous
  Country: US (occurrence: US)
  Receive Date: 20101013
  Receipt Date: 20160927
  Transmission Date: 20161109
  Serious: No
  Sender: FDA-Public Use
  Company Number: US-ASTRAZENECA-2010SE22945

PATIENT
  Age: 703 Month
  Sex: Female
  Weight: 81.6 kg

DRUGS (13)
  1. LITHIUM. [Concomitant]
     Active Substance: LITHIUM
  2. OXYGEN. [Concomitant]
     Active Substance: OXYGEN
     Indication: DYSPNOEA
     Route: 045
  3. PROAIR HFA [Concomitant]
     Active Substance: ALBUTEROL SULFATE
     Indication: SUPPLEMENTATION THERAPY
     Route: 055
  4. SYMBICORT [Suspect]
     Active Substance: BUDESONIDE\FORMOTEROL FUMARATE DIHYDRATE
     Indication: CHRONIC OBSTRUCTIVE PULMONARY DISEASE
     Dosage: 160/ 4.5 MCG, TWO INHALATIONS TWICE DAILY
     Route: 055
     Dates: start: 200912
  5. SYMBICORT [Suspect]
     Active Substance: BUDESONIDE\FORMOTEROL FUMARATE DIHYDRATE
     Indication: EMPHYSEMA
     Dosage: 160/ 4.5 MCG, TWO INHALATIONS TWICE DAILY
     Route: 055
     Dates: start: 200912
  6. LITHIUM. [Concomitant]
     Active Substance: LITHIUM
  7. RISPERDAL [Concomitant]
     Active Substance: RISPERIDONE
  8. SYMBICORT [Suspect]
     Active Substance: BUDESONIDE\FORMOTEROL FUMARATE DIHYDRATE
     Indication: CHRONIC OBSTRUCTIVE PULMONARY DISEASE
     Dosage: 160/ 4.5 MCG, 2 PUFFS TWICE A DAY,
     Route: 055
     Dates: start: 200912
  9. NAVANE [Concomitant]
     Active Substance: THIOTHIXENE
  10. SYMBICORT [Suspect]
     Active Substance: BUDESONIDE\FORMOTEROL FUMARATE DIHYDRATE
     Indication: EMPHYSEMA
     Dosage: 160/ 4.5 MCG, 2 PUFFS TWICE A DAY,
     Route: 055
     Dates: start: 200912
  11. ZANTAC [Concomitant]
     Active Substance: RANITIDINE HYDROCHLORIDE
     Dosage: TWO TIMES A DAY
  12. CELEXA [Concomitant]
     Active Substance: CITALOPRAM HYDROBROMIDE
  13. SPIRIVA [Concomitant]
     Active Substance: TIOTROPIUM BROMIDE MONOHYDRATE
     Route: 055

REACTIONS (9)
  - Fatigue [Unknown]
  - Circumstance or information capable of leading to medication error [Unknown]
  - Chills [Unknown]
  - Panic reaction [Recovering/Resolving]
  - Dyspnoea [Unknown]
  - Feeling cold [Unknown]
  - Drug dose omission [Recovering/Resolving]
  - Intentional device misuse [Unknown]
  - Product quality issue [Unknown]

NARRATIVE: CASE EVENT DATE: 200912
